FAERS Safety Report 24355734 (Version 1)
Quarter: 2024Q3

REPORT INFORMATION
  Report Type: Spontaneous
  Country: JP (occurrence: JP)
  Receive Date: 20240924
  Receipt Date: 20240924
  Transmission Date: 20241017
  Serious: Yes (Other)
  Sender: CSL BEHRING
  Company Number: JP-BEH-2024178740

PATIENT
  Weight: 95 kg

DRUGS (1)
  1. FIBROGAMMIN P [Suspect]
     Active Substance: FACTOR XIII CONCENTRATE (HUMAN)
     Indication: Factor XIII deficiency
     Dosage: 8 ML
     Route: 065

REACTIONS (1)
  - Cerebral haemorrhage [Unknown]
